FAERS Safety Report 4773165-X (Version None)
Quarter: 2005Q3

REPORT INFORMATION
  Report Type: 
  Country: None (occurrence: None)
  Receive Date: 20050915
  Receipt Date: 20050915
  Transmission Date: 20060218
  Serious: Yes (Other)
  Sender: FDA-Public Use
  Company Number: None

PATIENT
  Sex: Male
  Weight: 117.9352 kg

DRUGS (3)
  1. PERCODAN [Suspect]
     Indication: BACK PAIN
     Dosage: 1 PO TID
     Route: 048
     Dates: start: 19990101, end: 20000101
  2. PERCODAN [Suspect]
     Indication: OSTEOARTHRITIS
     Dosage: 1 PO TID
     Route: 048
     Dates: start: 19990101, end: 20000101
  3. PERCODAN [Suspect]
     Indication: PAIN
     Dosage: 1 PO TID
     Route: 048
     Dates: start: 19990101, end: 20000101

REACTIONS (4)
  - NEUROPATHY [None]
  - PAIN [None]
  - PHARMACEUTICAL PRODUCT COMPLAINT [None]
  - RASH [None]
